FAERS Safety Report 7612118-0 (Version None)
Quarter: 2011Q3

REPORT INFORMATION
  Report Type: 
  Country: None (occurrence: None)
  Receive Date: 20110715
  Receipt Date: 20110711
  Transmission Date: 20111222
  Serious: Yes (Other)
  Sender: FDA-Public Use
  Company Number: US-ELI_LILLY_AND_COMPANY-US201002003751

PATIENT
  Sex: Female
  Weight: 106.58 kg

DRUGS (17)
  1. JANUMET [Concomitant]
     Indication: DIABETES MELLITUS
     Dosage: UNK, BID
  2. LANOXIN [Concomitant]
     Dosage: 0.125 MG, QD
  3. HYDROCODONE [Concomitant]
  4. BYETTA [Suspect]
     Dosage: UNK, UNKNOWN
     Route: 065
     Dates: start: 20070601, end: 20081101
  5. CALCIUM CARBONATE [Concomitant]
     Dosage: UNK, BID
  6. FOLIC ACID [Concomitant]
  7. TYLENOL                                 /SCH/ [Concomitant]
     Indication: HEADACHE
  8. PIOGLITAZONE [Concomitant]
     Dosage: UNK, QD
  9. GLIMEPIRIDE [Concomitant]
     Dosage: UNK, QD
  10. POTASSIUM CHLORIDE [Concomitant]
     Dosage: 200 MEQ, BID
  11. TRICOR [Concomitant]
     Indication: BLOOD CHOLESTEROL INCREASED
     Dosage: UNK, QD
  12. LYRICA [Concomitant]
  13. QUININE SULFATE [Concomitant]
     Dosage: 260 MG, QD
  14. FUROSEMIDE [Concomitant]
     Dosage: 80 MG, BID
  15. LEVEMIR [Concomitant]
     Dosage: UNK, PRN
  16. ASCORBIC ACID [Concomitant]
  17. VASOTEC [Concomitant]
     Dosage: 10 MG, QD

REACTIONS (1)
  - PANCREATITIS [None]
